FAERS Safety Report 4335524-9 (Version None)
Quarter: 2004Q2

REPORT INFORMATION
  Report Type: 
  Country: None (occurrence: None)
  Receive Date: 20040406
  Receipt Date: 20040308
  Transmission Date: 20050107
  Serious: Yes (Hospitalization, Other)
  Sender: FDA-Public Use
  Company Number: 2003127364

PATIENT
  Age: 75 Year
  Sex: Female
  Weight: 52.6173 kg

DRUGS (9)
  1. NORVASC [Suspect]
     Indication: HYPERTENSION
  2. ACCUPRIL [Suspect]
     Indication: ILL-DEFINED DISORDER
  3. ANTIHYPERTENSIVES (ANTIHYPERTENSIVES) [Suspect]
     Indication: HYPERTENSION
  4. HYDROCHLOROTHIAZIDE [Concomitant]
  5. CLONIDINE [Concomitant]
  6. MONTELEUKAST SODIUM (MONTELEUKAST SODIUM) [Concomitant]
  7. SALBUTAMOL (SALBUTAMOL) [Concomitant]
  8. CALCIUM (CALCIUM) [Concomitant]
  9. DILTIAZEM HYDROCHLORIDE [Concomitant]

REACTIONS (5)
  - ARTERIAL THROMBOSIS [None]
  - DRUG INTOLERANCE [None]
  - JOINT SWELLING [None]
  - OEDEMA PERIPHERAL [None]
  - VERTIGO [None]
